FAERS Safety Report 4320171-5 (Version None)
Quarter: 2004Q1

REPORT INFORMATION
  Report Type: 
  Country: None (occurrence: None)
  Receive Date: 20040317
  Receipt Date: 20040303
  Transmission Date: 20041129
  Serious: Yes (Other)
  Sender: FDA-Public Use
  Company Number: ZANA001142

PATIENT
  Age: 48 Year
  Sex: Male
  Weight: 90 kg

DRUGS (4)
  1. TIZANIDINE HCL [Suspect]
     Indication: BACK PAIN
     Dosage: 6 MG DAILY ORAL
     Route: 048
     Dates: start: 20020131, end: 20020101
  2. FLOTAC (DICLOFENAC) [Concomitant]
  3. ENALAPRIL MALEATE [Concomitant]
  4. DEXAMETHASONE [Concomitant]

REACTIONS (4)
  - BLOOD PRESSURE INCREASED [None]
  - COGNITIVE DISORDER [None]
  - HYPOAESTHESIA ORAL [None]
  - SOMNOLENCE [None]
